FAERS Safety Report 7458497-9 (Version None)
Quarter: 2011Q2

REPORT INFORMATION
  Report Type: 
  Country: None (occurrence: None)
  Receive Date: 20110503
  Receipt Date: 20110503
  Transmission Date: 20111010
  Serious: Yes (Life-Threatening, Hospitalization)
  Sender: FDA-Public Use
  Company Number: None

PATIENT
  Sex: Male
  Weight: 79.8331 kg

DRUGS (1)
  1. LISINOPRIL [Suspect]
     Indication: CARDIAC DISORDER
     Dosage: 2.5 MG 1 X PER DAY PO
     Route: 048
     Dates: start: 20080101, end: 20110430

REACTIONS (1)
  - ANGIOEDEMA [None]
